FAERS Safety Report 10924879 (Version 1)
Quarter: 2015Q1

REPORT INFORMATION
  Report Type: Spontaneous
  Country: VI (occurrence: None)
  Receive Date: 20150316
  Receipt Date: 20150316
  Transmission Date: 20150721
  Serious: Yes (Other)
  Sender: FDA-Public Use
  Company Number: None

PATIENT
  Age: 42 Year
  Sex: Female
  Weight: 67.13 kg

DRUGS (5)
  1. ADVIL [Concomitant]
     Active Substance: IBUPROFEN
  2. EXCEDERIN [Concomitant]
  3. MULTI VITAMINS [Concomitant]
  4. VITAMIN B12 [Concomitant]
     Active Substance: CYANOCOBALAMIN
  5. REMICADE [Suspect]
     Active Substance: INFLIXIMAB
     Indication: CROHN^S DISEASE
     Dosage: IV, (?) 353 ML 8 WEEKS INTO A VEINI
     Route: 042
     Dates: start: 20120212, end: 20150312

REACTIONS (7)
  - Vascular pain [None]
  - Malaise [None]
  - Fatigue [None]
  - Chest pain [None]
  - Heart rate increased [None]
  - Nausea [None]
  - Neck pain [None]

NARRATIVE: CASE EVENT DATE: 20150113
